FAERS Safety Report 10207192 (Version 2)
Quarter: 2014Q2

REPORT INFORMATION
  Report Type: Report from Study
  Country: AU (occurrence: AU)
  Receive Date: 20140530
  Receipt Date: 20140530
  Transmission Date: 20141212
  Serious: Yes (Hospitalization)
  Sender: FDA-Public Use
  Company Number: AU-VERTEX PHARMACEUTICALS INC-2014-002196

PATIENT
  Age: 19 Year
  Sex: Female
  Weight: 60 kg

DRUGS (19)
  1. VX-809 FDC [Suspect]
     Indication: CYSTIC FIBROSIS
     Dosage: UNK
     Dates: start: 20140313
  2. VX-770 FDC [Suspect]
     Indication: CYSTIC FIBROSIS
     Dosage: UNK
     Dates: start: 20140313
  3. VX-809 FDC OR PLACEBO [Suspect]
     Indication: CYSTIC FIBROSIS
     Dosage: UNK
     Route: 065
     Dates: start: 20130923, end: 20140312
  4. VX-770 FDC OR PLACEBO [Suspect]
     Indication: CYSTIC FIBROSIS
     Dosage: UNK
     Route: 065
     Dates: start: 20130923, end: 20140312
  5. FLUCLOXACILLIN [Concomitant]
     Indication: CYSTIC FIBROSIS LUNG
     Dosage: 500 MG, QID
     Route: 048
     Dates: start: 1995
  6. SALBUTAMOL [Concomitant]
     Indication: CYSTIC FIBROSIS LUNG
     Dosage: 5 MG, BID
     Route: 055
     Dates: start: 1995
  7. SERETIDE [Concomitant]
     Indication: CYSTIC FIBROSIS LUNG
     Dosage: 3 PUFFS, BID
     Route: 055
     Dates: start: 1995
  8. PULMOZYME [Concomitant]
     Indication: CYSTIC FIBROSIS LUNG
     Dosage: 2.5 MG, QD
     Route: 055
     Dates: start: 2011
  9. HYPERTONIC SALINE SOLUTION [Concomitant]
     Dosage: 3 %, UNK
     Route: 055
     Dates: start: 20140324
  10. HYPERTONIC SALINE SOLUTION [Concomitant]
     Dosage: 5 ML, BID
     Route: 055
  11. CREON [Concomitant]
     Indication: PANCREATIC INSUFFICIENCY
     Dosage: 10000 IU, TID
     Route: 048
     Dates: start: 1995
  12. ABDEC [Concomitant]
     Indication: HYPOVITAMINOSIS
     Dosage: 2 TABS, UNK
     Route: 048
     Dates: start: 2011
  13. METOCLOPRAMIDE [Concomitant]
     Dosage: 10 MG, UNK
     Route: 048
  14. RABEPRAZOLE [Concomitant]
     Indication: GASTROOESOPHAGEAL REFLUX DISEASE
     Dosage: 20 MG, UNK
     Route: 048
     Dates: start: 201301
  15. CHOLECALCIFEROL [Concomitant]
     Dosage: 1000 IU, UNK
     Route: 048
  16. LEVEMIR [Concomitant]
     Indication: CYSTIC FIBROSIS RELATED DIABETES
     Dosage: 6 IU, UNK
     Route: 058
     Dates: start: 201104
  17. AZITHROMYCIN [Concomitant]
     Dosage: 250 MG, BID
     Route: 048
  18. MAXOLON [Concomitant]
     Indication: GASTROOESOPHAGEAL REFLUX DISEASE
     Dosage: UNK
     Route: 048
     Dates: start: 20131215
  19. RHINOCORT [Concomitant]
     Indication: PROPHYLAXIS
     Dosage: UNK
     Route: 061
     Dates: start: 20131215

REACTIONS (1)
  - Infective pulmonary exacerbation of cystic fibrosis [Recovered/Resolved]
